FAERS Safety Report 8804992 (Version 1)
Quarter: 2012Q4

REPORT INFORMATION
  Report Type: Spontaneous
  Country: KR (occurrence: None)
  Receive Date: 20120917
  Receipt Date: 20120917
  Transmission Date: 20130627
  Serious: Yes (Other)
  Sender: FDA-Public Use
  Company Number: DSA_59512_2012

PATIENT

DRUGS (4)
  1. FLUOROURACIL (FLUOROURACIL) [Suspect]
     Indication: GASTRIC CANCER
     Route: 042
  2. LEUCOVORIN [Suspect]
     Route: 042
  3. IRINOTECAN [Suspect]
     Route: 042
  4. ANTIEMETICS AND ANTINAUSEANTS [Concomitant]

REACTIONS (2)
  - Thrombocytopenia [None]
  - Haematotoxicity [None]
